FAERS Safety Report 5657256-7 (Version None)
Quarter: 2008Q1

REPORT INFORMATION
  Report Type: 
  Country: None (occurrence: None)
  Receive Date: 20080307
  Receipt Date: 20080307
  Transmission Date: 20080703
  Serious: Yes (Death, Hospitalization)
  Sender: FDA-Public Use
  Company Number: None

PATIENT
  Sex: Female
  Weight: 71 kg

DRUGS (3)
  1. TEMOZOLOMIDE [Suspect]
     Dosage: 910 MG
  2. FORTECORIN (DEXAMETHASONE) [Concomitant]
  3. RADIOTHERAPY [Concomitant]

REACTIONS (10)
  - APATHY [None]
  - BRAIN OEDEMA [None]
  - CONFUSIONAL STATE [None]
  - DISEASE PROGRESSION [None]
  - DISORIENTATION [None]
  - GENERAL PHYSICAL HEALTH DETERIORATION [None]
  - NEUTROPENIA [None]
  - PAIN [None]
  - PYREXIA [None]
  - THROMBOCYTOPENIA [None]
